FAERS Safety Report 6718327-7 (Version None)
Quarter: 2010Q2

REPORT INFORMATION
  Report Type: 
  Country: None (occurrence: None)
  Receive Date: 20100505
  Receipt Date: 20100422
  Transmission Date: 20101027
  Serious: Yes (Congenital Anomaly)
  Sender: FDA-Public Use
  Company Number: 167-20484-09092117

PATIENT
  Sex: Female
  Weight: 2.76 kg

DRUGS (1)
  1. INNOHEP [Suspect]
     Dosage: TRANSPLACENTAL
     Route: 064
     Dates: start: 20070627, end: 20071029

REACTIONS (2)
  - MATERNAL DRUGS AFFECTING FOETUS [None]
  - TALIPES [None]
